FAERS Safety Report 7672700-1 (Version None)
Quarter: 2011Q3

REPORT INFORMATION
  Report Type: 
  Country: None (occurrence: None)
  Receive Date: 20110809
  Receipt Date: 20110729
  Transmission Date: 20111222
  Serious: Yes (Hospitalization, Other)
  Sender: FDA-Public Use
  Company Number: PHHY2011GR70018

PATIENT
  Age: 72 Year
  Sex: Male

DRUGS (2)
  1. MEROPENEM [Suspect]
     Indication: GASTRIC HYPOMOTILITY
  2. VANCOMYCIN [Suspect]
     Indication: GASTRIC HYPOMOTILITY

REACTIONS (11)
  - DYSPNOEA [None]
  - URINARY INCONTINENCE [None]
  - PYREXIA [None]
  - OXYGEN SATURATION DECREASED [None]
  - SEPSIS [None]
  - CHILLS [None]
  - CONFUSIONAL STATE [None]
  - ENDOCARDITIS CANDIDA [None]
  - PNEUMONIA [None]
  - PLEURAL EFFUSION [None]
  - HAEMODYNAMIC INSTABILITY [None]
